FAERS Safety Report 5924268-5 (Version None)
Quarter: 2008Q4

REPORT INFORMATION
  Report Type: 
  Country: None (occurrence: None)
  Receive Date: 20081020
  Receipt Date: 20081008
  Transmission Date: 20090506
  Serious: Yes (Other)
  Sender: FDA-Public Use
  Company Number: BR-PFIZER INC-2008050799

PATIENT
  Sex: Male

DRUGS (2)
  1. XALATAN [Suspect]
     Indication: GLAUCOMA
  2. XALACOM [Suspect]
     Indication: GLAUCOMA

REACTIONS (1)
  - INTRAOCULAR PRESSURE INCREASED [None]
